FAERS Safety Report 6889938-3 (Version None)
Quarter: 2010Q3

REPORT INFORMATION
  Report Type: 
  Country: None (occurrence: None)
  Receive Date: 20100730
  Receipt Date: 20080801
  Transmission Date: 20110219
  Serious: No
  Sender: FDA-Public Use
  Company Number: US-PFIZER INC-2008053263

PATIENT
  Sex: Male
  Weight: 81.818 kg

DRUGS (5)
  1. LIPITOR [Suspect]
     Indication: BLOOD CHOLESTEROL INCREASED
     Dates: start: 19970101
  2. ZETIA [Suspect]
     Indication: BLOOD CHOLESTEROL INCREASED
  3. ACE INHIBITOR NOS [Concomitant]
  4. BETA BLOCKING AGENTS [Concomitant]
  5. ACETYLSALICYLIC ACID SRT [Concomitant]

REACTIONS (2)
  - BLOOD CHOLESTEROL INCREASED [None]
  - HELICOBACTER INFECTION [None]
